FAERS Safety Report 6692046-8 (Version None)
Quarter: 2010Q2

REPORT INFORMATION
  Report Type: 
  Country: None (occurrence: None)
  Receive Date: 20100422
  Receipt Date: 20100201
  Transmission Date: 20101027
  Serious: Yes (Hospitalization)
  Sender: FDA-Public Use
  Company Number: PHHY2010CN22457

PATIENT

DRUGS (2)
  1. VOLTAREN [Suspect]
     Indication: ANALGESIC THERAPY
  2. TYLENOL-500 [Concomitant]

REACTIONS (5)
  - COUGH [None]
  - HAEMOPTYSIS [None]
  - HAEMORRHAGIC DIATHESIS [None]
  - MARROW HYPERPLASIA [None]
  - REFRACTORINESS TO PLATELET TRANSFUSION [None]
